FAERS Safety Report 5157849-X (Version None)
Quarter: 2006Q4

REPORT INFORMATION
  Report Type: 
  Country: None (occurrence: None)
  Receive Date: 20061116
  Receipt Date: 20061031
  Transmission Date: 20070319
  Serious: Yes (Death)
  Sender: FDA-Public Use
  Company Number: L06-USA-04699-06

PATIENT

DRUGS (3)
  1. BENZONATATE [Suspect]
  2. ASPIRIN [Suspect]
  3. HYDROCODONE BITARTRATE + ACETAMINOPHEN [Suspect]

REACTIONS (2)
  - CARDIAC ARREST [None]
  - RESPIRATORY ARREST [None]
